FAERS Safety Report 24459619 (Version 1)
Quarter: 2024Q4

REPORT INFORMATION
  Report Type: Report from Study
  Country: CA (occurrence: CA)
  Receive Date: 20241018
  Receipt Date: 20241018
  Transmission Date: 20250115
  Serious: No
  Sender: ROCHE
  Company Number: CA-ROCHE-3531703

PATIENT
  Age: 74 Year
  Sex: Female

DRUGS (14)
  1. RITUXAN [Suspect]
     Active Substance: RITUXIMAB
     Indication: Granulomatosis with polyangiitis
     Dosage: INFUSIONS ONCE WEEKLY FOR 4 WEEKS, REPEAT EVERY 6?MONTHS
     Route: 041
     Dates: start: 20201116, end: 20201207
  2. RITUXAN [Suspect]
     Active Substance: RITUXIMAB
     Dosage: ONCE WEEKLY FOR 4 WEEKS
     Route: 041
     Dates: start: 20210607, end: 20210628
  3. RITUXAN [Suspect]
     Active Substance: RITUXIMAB
     Dosage: ONCE WEEKLY FOR 4 WEEKS
     Route: 041
     Dates: start: 20220118, end: 20220207
  4. RITUXAN [Suspect]
     Active Substance: RITUXIMAB
     Dosage: ONCE WEEKLY FOR 4 WEEKS
     Route: 041
     Dates: start: 20220620, end: 20220711
  5. RITUXAN [Suspect]
     Active Substance: RITUXIMAB
     Dosage: ONCE WEEKLY FOR 4 WEEKS
     Route: 041
     Dates: start: 20230201
  6. ADVIL [Concomitant]
     Active Substance: IBUPROFEN
  7. CRESTOR [Concomitant]
     Active Substance: ROSUVASTATIN CALCIUM
  8. IPRAVENT (CANADA) [Concomitant]
  9. METHOTREXATE [Concomitant]
     Active Substance: METHOTREXATE
  10. NAPROXEN [Concomitant]
     Active Substance: NAPROXEN
     Indication: Pain
  11. OLMESARTAN [Concomitant]
     Active Substance: OLMESARTAN
  12. CETIRIZINE HYDROCHLORIDE [Concomitant]
     Active Substance: CETIRIZINE HYDROCHLORIDE
  13. TEARS NATURALE (CANADA) [Concomitant]
  14. ZOPICLONE [Concomitant]
     Active Substance: ZOPICLONE

REACTIONS (5)
  - Localised infection [Recovered/Resolved]
  - Fluid retention [Not Recovered/Not Resolved]
  - Pulmonary mass [Not Recovered/Not Resolved]
  - Dyspnoea [Not Recovered/Not Resolved]
  - Wheezing [Not Recovered/Not Resolved]

NARRATIVE: CASE EVENT DATE: 20240101
